FAERS Safety Report 8550460-X (Version None)
Quarter: 2012Q3

REPORT INFORMATION
  Report Type: 
  Country: None (occurrence: None)
  Receive Date: 20120730
  Receipt Date: 20120716
  Transmission Date: 20120928
  Serious: Yes (Other)
  Sender: FDA-Public Use
  Company Number: US-ELI_LILLY_AND_COMPANY-US201207005191

PATIENT
  Sex: Male

DRUGS (6)
  1. ATENOLOL [Concomitant]
  2. CYMBALTA [Suspect]
     Indication: DEPRESSION
     Dosage: 60 MG, QD
     Route: 065
     Dates: end: 20120710
  3. CELEBREX [Concomitant]
  4. CYMBALTA [Suspect]
     Dosage: 120 MG, QD
     Route: 065
     Dates: start: 20120710
  5. LIPITOR [Concomitant]
  6. ZETIA [Concomitant]

REACTIONS (3)
  - DERMATITIS BULLOUS [None]
  - PAIN OF SKIN [None]
  - PARAESTHESIA [None]
